FAERS Safety Report 7402012-2 (Version None)
Quarter: 2011Q2

REPORT INFORMATION
  Report Type: 
  Country: None (occurrence: None)
  Receive Date: 20110408
  Receipt Date: 20110404
  Transmission Date: 20111010
  Serious: Yes (Hospitalization, Other)
  Sender: FDA-Public Use
  Company Number: US-PFIZER INC-2011074435

PATIENT
  Sex: Female

DRUGS (1)
  1. PREMARIN [Suspect]
     Dosage: 0.3 MG, DAILY
     Route: 048
     Dates: end: 20110101

REACTIONS (5)
  - PYREXIA [None]
  - CHILLS [None]
  - JAUNDICE [None]
  - RASH [None]
  - LABORATORY TEST ABNORMAL [None]
